FAERS Safety Report 6010358-8 (Version None)
Quarter: 2008Q4

REPORT INFORMATION
  Report Type: 
  Country: None (occurrence: None)
  Receive Date: 20081216
  Receipt Date: 20081203
  Transmission Date: 20090506
  Serious: Yes (Death, Other)
  Sender: FDA-Public Use
  Company Number: 2008-03618

PATIENT
  Age: 60 Year
  Sex: Female

DRUGS (7)
  1. VELCADE [Suspect]
     Indication: MULTIPLE MYELOMA
     Dosage: 1 MG/M2, IV BOLUS
     Route: 040
     Dates: start: 20060109, end: 20060411
  2. MELPHALAN(MELPHALAN) [Suspect]
     Indication: MULTIPLE MYELOMA
     Dosage: 0.15 MG/KG, ORAL
     Route: 048
     Dates: start: 20060109, end: 20060409
  3. THALIDOMIDE [Suspect]
     Indication: MULTIPLE MYELOMA
     Dosage: 100 MG
     Dates: start: 20060109, end: 20060409
  4. DEXAMETHASONE TAB [Suspect]
     Indication: MULTIPLE MYELOMA
     Dosage: 12 MG/M2
     Dates: start: 20060109, end: 20060409
  5. VALACYCLOVIR [Concomitant]
  6. BACTRIM [Concomitant]
  7. ZOLEDRONIC ACID [Concomitant]

REACTIONS (3)
  - DISEASE PROGRESSION [None]
  - MULTIPLE MYELOMA [None]
  - PNEUMOCYSTIS JIROVECI PNEUMONIA [None]
